FAERS Safety Report 12884688 (Version 1)
Quarter: 2016Q4

REPORT INFORMATION
  Report Type: Spontaneous
  Country: US (occurrence: US)
  Receive Date: 20161025
  Receipt Date: 20161025
  Transmission Date: 20170207
  Serious: Yes (Hospitalization, Disabling)
  Sender: FDA-Public Use
  Company Number: None

PATIENT
  Age: 48 Year
  Sex: Female
  Weight: 81.9 kg

DRUGS (2)
  1. INTERSTIM [Concomitant]
  2. LEVAQUIN [Suspect]
     Active Substance: LEVOFLOXACIN
     Indication: SINUSITIS
     Route: 048
     Dates: start: 20061025

REACTIONS (9)
  - Eye disorder [None]
  - Disturbance in attention [None]
  - Gastrointestinal disorder [None]
  - Bladder disorder [None]
  - Neuropathy peripheral [None]
  - Tendon disorder [None]
  - Muscle disorder [None]
  - Arthropathy [None]
  - Abasia [None]

NARRATIVE: CASE EVENT DATE: 20061129
